FAERS Safety Report 11325563 (Version 1)
Quarter: 2015Q3

REPORT INFORMATION
  Report Type: Spontaneous
  Country: US (occurrence: US)
  Receive Date: 20150731
  Receipt Date: 20150731
  Transmission Date: 20151125
  Serious: Yes (Other)
  Sender: FDA-Public Use
  Company Number: US-JNJFOC-20150718137

PATIENT
  Age: 30 Year
  Sex: Male
  Weight: 113.4 kg

DRUGS (1)
  1. BENGAY ULTRA STRENGTH PAIN RELIEVING [Suspect]
     Active Substance: CAMPHOR (SYNTHETIC)\MENTHOL\METHYL SALICYLATE
     Indication: MYALGIA
     Dosage: SMALL AMOUNT OR QUARTER
     Route: 061

REACTIONS (1)
  - Palatal disorder [Recovered/Resolved]
